FAERS Safety Report 7362286-3 (Version None)
Quarter: 2011Q1

REPORT INFORMATION
  Report Type: 
  Country: None (occurrence: None)
  Receive Date: 20110318
  Receipt Date: 20110314
  Transmission Date: 20110831
  Serious: Yes (Life-Threatening)
  Sender: FDA-Public Use
  Company Number: PHHY2011US20788

PATIENT
  Sex: Male

DRUGS (4)
  1. EXELON [Suspect]
     Indication: DEMENTIA ALZHEIMER'S TYPE
     Dosage: 4.6 MG, UNK
     Route: 062
  2. EXELON [Suspect]
     Dosage: 9.5 MG, UNK
     Route: 062
  3. EXELON [Suspect]
     Dosage: UNK
     Route: 062
     Dates: start: 20110311
  4. LOZOL [Concomitant]

REACTIONS (1)
  - SUICIDAL IDEATION [None]
